FAERS Safety Report 6195332-3 (Version None)
Quarter: 2009Q2

REPORT INFORMATION
  Report Type: 
  Country: None (occurrence: None)
  Receive Date: 20090519
  Receipt Date: 20090507
  Transmission Date: 20091009
  Serious: Yes (Other)
  Sender: FDA-Public Use
  Company Number: NL-PFIZER INC-2009210896

PATIENT
  Age: 50 Year

DRUGS (1)
  1. LYRICA [Suspect]
     Indication: TRIGEMINAL NEURALGIA
     Dosage: UP TO 450 MG PER DAY
     Route: 048
     Dates: start: 20070201

REACTIONS (3)
  - BLOOD GLUCOSE INCREASED [None]
  - PRODUCTIVE COUGH [None]
  - VISUAL ACUITY REDUCED [None]
